FAERS Safety Report 5567083-7 (Version None)
Quarter: 2007Q4

REPORT INFORMATION
  Report Type: 
  Country: None (occurrence: None)
  Receive Date: 20071219
  Receipt Date: 20060807
  Transmission Date: 20080405
  Serious: Yes (Death, Hospitalization)
  Sender: FDA-Public Use
  Company Number: CZ-ROCHE-459031

PATIENT
  Age: 72 Year
  Sex: Female

DRUGS (1)
  1. XELODA [Suspect]
     Route: 065
     Dates: start: 20060601, end: 20060701

REACTIONS (8)
  - DEATH [None]
  - DIARRHOEA [None]
  - ENTEROVIRUS INFECTION [None]
  - FAECES DISCOLOURED [None]
  - ORAL CANDIDIASIS [None]
  - PYREXIA [None]
  - RENAL IMPAIRMENT [None]
  - VOMITING [None]
